FAERS Safety Report 9773015 (Version 1)
Quarter: 2013Q4

REPORT INFORMATION
  Report Type: Spontaneous
  Country: US (occurrence: None)
  Receive Date: 20131218
  Receipt Date: 20131218
  Transmission Date: 20140711
  Serious: Yes (Other)
  Sender: FDA-Public Use
  Company Number: None

PATIENT
  Age: 24 Year
  Sex: Female
  Weight: 113.4 kg

DRUGS (2)
  1. LEVOTHYROXIN [Suspect]
     Indication: HYPOTHYROIDISM
     Route: 048
     Dates: start: 20070619, end: 20070730
  2. LEVOTHYROXIN [Suspect]
     Indication: HYPOTHYROIDISM
     Route: 048
     Dates: start: 20070730, end: 20070917

REACTIONS (2)
  - Product substitution issue [None]
  - Blood thyroid stimulating hormone increased [None]
